FAERS Safety Report 8256703-4 (Version None)
Quarter: 2012Q2

REPORT INFORMATION
  Report Type: 
  Country: None (occurrence: None)
  Receive Date: 20120403
  Receipt Date: 20120322
  Transmission Date: 20120825
  Serious: Yes (Death, Hospitalization)
  Sender: FDA-Public Use
  Company Number: FR-JNJFOC-20110802436

PATIENT
  Sex: Male

DRUGS (5)
  1. ABIRATERONE [Suspect]
     Route: 048
  2. NITRENDIPINE [Concomitant]
     Indication: HYPERTENSION
     Route: 065
  3. PREDNISONE TAB [Suspect]
     Indication: PRODUCT USED FOR UNKNOWN INDICATION
     Dosage: IN THE MORNING
     Route: 048
     Dates: start: 20110611
  4. ABIRATERONE [Suspect]
     Indication: PROSTATE CANCER
     Dosage: INITIATED LESS THAN 3 MONTHS
     Route: 048
     Dates: start: 20110611, end: 20110802
  5. NEBIVOLOL HCL [Concomitant]
     Indication: HYPERTENSION
     Route: 065

REACTIONS (5)
  - MYOCARDIAL ISCHAEMIA [None]
  - CARDIAC FAILURE [None]
  - SPINAL CORD COMPRESSION [None]
  - LUNG DISORDER [None]
  - PULMONARY OEDEMA [None]
